FAERS Safety Report 25984409 (Version 1)
Quarter: 2025Q4

REPORT INFORMATION
  Report Type: Spontaneous
  Country: CN (occurrence: CN)
  Receive Date: 20251031
  Receipt Date: 20251031
  Transmission Date: 20260117
  Serious: Yes (Life-Threatening, Other)
  Sender: PFIZER
  Company Number: CN-PFIZER INC-202500214028

PATIENT
  Weight: 1.9 kg

DRUGS (2)
  1. METHYLPREDNISOLONE SODIUM SUCCINATE [Suspect]
     Active Substance: METHYLPREDNISOLONE SODIUM SUCCINATE
     Indication: Haemolytic transfusion reaction
     Dosage: 250 MG, DAILY
     Route: 064
  2. HUMAN IMMUNOGLOBULIN G [Suspect]
     Active Substance: HUMAN IMMUNOGLOBULIN G
     Indication: Haemolytic transfusion reaction
     Dosage: 1 G/KG, DAILY
     Route: 064

REACTIONS (2)
  - Foetal growth restriction [Recovered/Resolved]
  - Exposure during pregnancy [Recovered/Resolved]
